FAERS Safety Report 5493878-4 (Version None)
Quarter: 2007Q4

REPORT INFORMATION
  Report Type: 
  Country: None (occurrence: None)
  Receive Date: 20071018
  Receipt Date: 20071011
  Transmission Date: 20080405
  Serious: Yes (Other)
  Sender: FDA-Public Use
  Company Number: 2007332978

PATIENT
  Age: 44 Year
  Sex: Male
  Weight: 68 kg

DRUGS (1)
  1. BENGAY (MENTHOL) [Suspect]
     Indication: MUSCULOSKELETAL STIFFNESS
     Dosage: A PEA SIZE AMOUNT, ONCE, TOPICAL
     Route: 061
     Dates: start: 20071007, end: 20071007

REACTIONS (1)
  - APPLICATION SITE BURN [None]
